FAERS Safety Report 8594503-6 (Version None)
Quarter: 2012Q3

REPORT INFORMATION
  Report Type: 
  Country: None (occurrence: None)
  Receive Date: 20120815
  Receipt Date: 20120802
  Transmission Date: 20120928
  Serious: No
  Sender: FDA-Public Use
  Company Number: US-009507513-1208USA001676

PATIENT

DRUGS (1)
  1. TICE BCG [Suspect]
     Dosage: UNK
     Route: 062
     Dates: start: 20120802

REACTIONS (2)
  - NO ADVERSE EVENT [None]
  - EXPOSURE VIA DIRECT CONTACT [None]
